FAERS Safety Report 8871886 (Version 1)
Quarter: 2012Q4

REPORT INFORMATION
  Report Type: 
  Country: US (occurrence: US)
  Receive Date: 20121026
  Receipt Date: 20121026
  Transmission Date: 20130627
  Serious: No
  Sender: FDA-Public Use
  Company Number: US-AMGEN-USASP2012048957

PATIENT
  Sex: Female
  Weight: 113.38 kg

DRUGS (7)
  1. ENBREL [Suspect]
     Indication: PRODUCT USED FOR UNKNOWN INDICATION
     Dosage: 50 mg, qwk
     Route: 058
  2. METHOTREXATE [Concomitant]
     Dosage: 2.5 mg, UNK
  3. DIOVAN [Concomitant]
     Dosage: 40 mg, UNK
  4. METOPROLOL TARTRATE [Concomitant]
     Dosage: 25 mg, UNK
  5. FISH OIL [Concomitant]
     Dosage: UNK
  6. ALEVE [Concomitant]
     Dosage: 220 mg, UNK
  7. PRENATAL 1+1                       /02372601/ [Concomitant]
     Dosage: UNK

REACTIONS (1)
  - Upper respiratory tract infection [Unknown]
